FAERS Safety Report 5377774-9 (Version None)
Quarter: 2007Q3

REPORT INFORMATION
  Report Type: 
  Country: None (occurrence: None)
  Receive Date: 20070703
  Receipt Date: 20070620
  Transmission Date: 20080115
  Serious: Yes (Death, Hospitalization, Other)
  Sender: FDA-Public Use
  Company Number: CA-ELI_LILLY_AND_COMPANY-CA200706001401

PATIENT
  Age: 87 Year
  Sex: Female

DRUGS (3)
  1. EVISTA [Suspect]
     Indication: OSTEOPOROSIS
  2. CALCIUM CHLORIDE [Concomitant]
     Dates: start: 19980101
  3. VITAMIN D [Concomitant]

REACTIONS (4)
  - DEATH [None]
  - METASTATIC SQUAMOUS CELL CARCINOMA [None]
  - MYOCARDIAL INFARCTION [None]
  - PNEUMONIA [None]
